FAERS Safety Report 9257693 (Version 2)
Quarter: 2014Q1

REPORT INFORMATION
  Report Type: Spontaneous
  Country: US (occurrence: None)
  Receive Date: 20121212
  Receipt Date: 20130314
  Transmission Date: 20141002
  Serious: No
  Sender: FDA-Public Use
  Company Number: 1210USA005745

PATIENT
  Age: 47 Year
  Sex: Female

DRUGS (10)
  1. VICTRELIS (BOCEPREVIR) CAPSULE, 200MG [Suspect]
     Indication: HEPATITIS C
     Route: 048
     Dates: start: 201204
  2. RIBASPHERE (RIBAVIRIN) [Suspect]
     Indication: HEPATITIS C
  3. PEGASYS (PEGINTERFERON ALFA-2A) [Suspect]
     Indication: HEPATITIS C
  4. PROCRIT (EPOETIN ALFA) [Concomitant]
  5. SINGULAIR (MONTELUKAST SODIUM) TABLET [Concomitant]
  6. DIOVAN (VALSARTAN) [Concomitant]
  7. LORAZEPAM (LORAZEPAM) [Concomitant]
  8. ADVAIR (FLUTICASONE PROPIONATE, SALMETEROL XINAFOATE) [Concomitant]
  9. LEVOTHYROXINE SODIUM (LEVOTHYROXINE SODIUM) [Concomitant]
  10. ALBUTEROL (ALBUTEROL) [Concomitant]

REACTIONS (5)
  - Oral pain [None]
  - Constipation [None]
  - Nausea [None]
  - Dysgeusia [None]
  - Anaemia [None]
